FAERS Safety Report 12426231 (Version 4)
Quarter: 2017Q3

REPORT INFORMATION
  Report Type: Spontaneous
  Country: KR (occurrence: KR)
  Receive Date: 20160601
  Receipt Date: 20170803
  Transmission Date: 20171127
  Serious: Yes (Hospitalization)
  Sender: FDA-Public Use
  Company Number: KR-TAKEDA-2016MPI004513

PATIENT
  Age: 73 Year
  Sex: Male
  Weight: 44.4 kg

DRUGS (31)
  1. VELCADE [Suspect]
     Active Substance: BORTEZOMIB
     Indication: PLASMA CELL MYELOMA
     Dosage: 2 MG, UNK
     Route: 058
     Dates: start: 20160229, end: 20160229
  2. TRIDOL [Concomitant]
     Active Substance: TRAMADOL HYDROCHLORIDE
     Dosage: 100 MG, UNK
     Route: 030
     Dates: start: 20160313, end: 20160313
  3. MELPHALAN. [Concomitant]
     Active Substance: MELPHALAN
     Indication: PLASMA CELL MYELOMA
     Dosage: 10 MG, UNK
     Route: 048
     Dates: start: 20160229, end: 20160414
  4. DARATUMUMAB [Concomitant]
     Active Substance: DARATUMUMAB
     Indication: PLASMA CELL MYELOMA
     Dosage: 848 MG, UNK
     Route: 042
     Dates: start: 20160229, end: 20160411
  5. VACROVIR                           /00587301/ [Concomitant]
     Indication: INFECTION PROPHYLAXIS
     Dosage: 500 MG, UNK
     Route: 048
     Dates: start: 20160229
  6. TRIDOL [Concomitant]
     Active Substance: TRAMADOL HYDROCHLORIDE
     Dosage: 50 MG, UNK
     Route: 030
     Dates: start: 20160228, end: 20160228
  7. TRIDOL [Concomitant]
     Active Substance: TRAMADOL HYDROCHLORIDE
     Dosage: 100 MG, UNK
     Route: 030
     Dates: start: 20160308, end: 20160308
  8. TRIDOL [Concomitant]
     Active Substance: TRAMADOL HYDROCHLORIDE
     Dosage: 100 MG, UNK
     Route: 030
     Dates: start: 20160321, end: 20160321
  9. VELCADE [Suspect]
     Active Substance: BORTEZOMIB
     Dosage: 2 MG, UNK
     Route: 058
     Dates: start: 20160303, end: 20160303
  10. TRIDOL [Concomitant]
     Active Substance: TRAMADOL HYDROCHLORIDE
     Indication: BACK PAIN
     Dosage: 50 MG, UNK
     Route: 030
     Dates: start: 20160228, end: 20160228
  11. TRIDOL [Concomitant]
     Active Substance: TRAMADOL HYDROCHLORIDE
     Dosage: 100 MG, UNK
     Route: 030
     Dates: start: 20160314, end: 20160314
  12. TRIDOL [Concomitant]
     Active Substance: TRAMADOL HYDROCHLORIDE
     Dosage: 100 MG, UNK
     Route: 030
     Dates: start: 20160321, end: 20160321
  13. VELCADE [Suspect]
     Active Substance: BORTEZOMIB
     Dosage: 2 MG, UNK
     Route: 058
     Dates: start: 20160307, end: 20160307
  14. VELCADE [Suspect]
     Active Substance: BORTEZOMIB
     Dosage: 2 MG, UNK
     Route: 058
     Dates: start: 20160321, end: 20160321
  15. VELCADE [Suspect]
     Active Substance: BORTEZOMIB
     Dosage: 2 MG, UNK
     Route: 058
  16. TRIDOL [Concomitant]
     Active Substance: TRAMADOL HYDROCHLORIDE
     Dosage: 100 MG, UNK
     Route: 030
     Dates: start: 20160313, end: 20160313
  17. CIPROCTAN [Concomitant]
     Indication: INFECTION PROPHYLAXIS
     Dosage: 1000 MG, UNK
     Route: 048
     Dates: start: 20160229
  18. VELCADE [Suspect]
     Active Substance: BORTEZOMIB
     Dosage: 2 MG, UNK
     Route: 058
     Dates: start: 20160310, end: 20160310
  19. PREDNISONE. [Concomitant]
     Active Substance: PREDNISONE
     Indication: PLASMA CELL MYELOMA
     Dosage: 90 MG, UNK
     Route: 048
     Dates: start: 20160301, end: 20160414
  20. TRIDOL [Concomitant]
     Active Substance: TRAMADOL HYDROCHLORIDE
     Dosage: 100 MG, UNK
     Route: 030
     Dates: start: 20160312, end: 20160312
  21. TRIDOL [Concomitant]
     Active Substance: TRAMADOL HYDROCHLORIDE
     Dosage: 100 MG, UNK
     Route: 030
     Dates: start: 20160308, end: 20160308
  22. TRIDOL [Concomitant]
     Active Substance: TRAMADOL HYDROCHLORIDE
     Dosage: 100 MG, UNK
     Route: 030
     Dates: start: 20160314, end: 20160314
  23. FLUCONAZOLE. [Concomitant]
     Active Substance: FLUCONAZOLE
     Indication: INFECTION PROPHYLAXIS
     Dosage: 200 MG, UNK
     Route: 048
     Dates: start: 20160229
  24. PANORIN [Concomitant]
     Indication: PROPHYLAXIS
     Dosage: 90 MG, UNK
     Route: 042
     Dates: start: 20160229
  25. VELCADE [Suspect]
     Active Substance: BORTEZOMIB
     Dosage: UNK
  26. ALLOPURINOL. [Concomitant]
     Active Substance: ALLOPURINOL
     Indication: PAIN PROPHYLAXIS
     Dosage: 300 MG, UNK
     Route: 048
     Dates: start: 20160228
  27. TRIDOL [Concomitant]
     Active Substance: TRAMADOL HYDROCHLORIDE
     Indication: ARTHRALGIA
     Dosage: 100 MG, UNK
     Route: 030
     Dates: start: 20160306, end: 20160306
  28. TRIDOL [Concomitant]
     Active Substance: TRAMADOL HYDROCHLORIDE
     Dosage: 100 MG, UNK
     Route: 030
     Dates: start: 20160312, end: 20160312
  29. TRIDOL [Concomitant]
     Active Substance: TRAMADOL HYDROCHLORIDE
     Dosage: 100 MG, UNK
     Route: 030
     Dates: start: 20160306, end: 20160306
  30. STOGAR [Concomitant]
     Active Substance: LAFUTIDINE
     Indication: PROPHYLAXIS
     Dosage: 10 MG, BID
     Route: 048
     Dates: start: 20160229, end: 20160430
  31. PETHIDINE [Concomitant]
     Active Substance: MEPERIDINE
     Indication: BACK PAIN
     Dosage: UNK
     Route: 042
     Dates: start: 20160229, end: 20160229

REACTIONS (3)
  - Pneumonia [Recovered/Resolved]
  - Cardiac discomfort [Unknown]
  - Back pain [Unknown]

NARRATIVE: CASE EVENT DATE: 20160303
